FAERS Safety Report 14418377 (Version 3)
Quarter: 2018Q1

REPORT INFORMATION
  Report Type: Other
  Country: US (occurrence: US)
  Receive Date: 20180122
  Receipt Date: 20180223
  Transmission Date: 20180509
  Serious: Yes (Hospitalization, Other)
  Sender: FDA-Public Use
  Company Number: US-INTERCEPT-PMOCA2017001474

PATIENT

DRUGS (7)
  1. OCALIVA [Suspect]
     Active Substance: OBETICHOLIC ACID
     Indication: PRIMARY BILIARY CHOLANGITIS
     Dosage: 5 MG, QD
     Route: 048
     Dates: start: 201709, end: 20171023
  2. OCALIVA [Suspect]
     Active Substance: OBETICHOLIC ACID
     Dosage: 10 MG, QD
     Route: 048
     Dates: start: 20171023, end: 20180111
  3. ACTIGALL [Concomitant]
     Active Substance: URSODIOL
     Dosage: 500 MG, BID
  4. RIFADIN [Suspect]
     Active Substance: RIFAMPIN
     Dosage: 150 MG, QD
     Route: 048
     Dates: start: 20171023, end: 20180111
  5. ACTIGALL [Concomitant]
     Active Substance: URSODIOL
     Dosage: 1500 MG, QD
  6. NALTREXONE [Concomitant]
     Active Substance: NALTREXONE
  7. QUESTRAN [Concomitant]
     Active Substance: CHOLESTYRAMINE
     Dosage: UNK, TID

REACTIONS (9)
  - Autoimmune hepatitis [Unknown]
  - Model for end stage liver disease score increased [Unknown]
  - Aspartate aminotransferase increased [Unknown]
  - Blood bilirubin increased [Unknown]
  - Blood alkaline phosphatase increased [Unknown]
  - Alanine aminotransferase increased [Unknown]
  - Pruritus [Not Recovered/Not Resolved]
  - Drug-induced liver injury [Unknown]
  - Fatigue [Unknown]

NARRATIVE: CASE EVENT DATE: 20180122
